FAERS Safety Report 18233135 (Version 2)
Quarter: 2020Q3

REPORT INFORMATION
  Report Type: Spontaneous
  Country: US (occurrence: US)
  Receive Date: 20200904
  Receipt Date: 20200910
  Transmission Date: 20201103
  Serious: Yes (Hospitalization, Other)
  Sender: FDA-Public Use
  Company Number: US-PFIZER INC-2020342933

PATIENT
  Age: 75 Year
  Sex: Female

DRUGS (1)
  1. IBRANCE [Suspect]
     Active Substance: PALBOCICLIB
     Indication: BREAST CANCER FEMALE
     Dosage: 100 MG, CYCLIC (21 DAYS)
     Route: 048
     Dates: start: 20200731, end: 20200828

REACTIONS (7)
  - Abdominal pain upper [Unknown]
  - Ascites [Unknown]
  - Dyspnoea [Unknown]
  - Decreased appetite [Unknown]
  - Abdominal distension [Unknown]
  - Fatigue [Unknown]
  - Nausea [Unknown]
